FAERS Safety Report 5988697-6 (Version None)
Quarter: 2008Q4

REPORT INFORMATION
  Report Type: 
  Country: None (occurrence: None)
  Receive Date: 20081210
  Receipt Date: 20081201
  Transmission Date: 20090506
  Serious: Yes (Other)
  Sender: FDA-Public Use
  Company Number: PHHY2008GB30574

PATIENT
  Sex: Female

DRUGS (3)
  1. CLOZARIL [Suspect]
     Dosage: 575 MG, UNK
     Dates: start: 20070201
  2. MOVICOL [Concomitant]
  3. FLOXACILLIN SODIUM [Concomitant]
     Indication: RASH PUSTULAR

REACTIONS (5)
  - CONSTIPATION [None]
  - FAECAL INCONTINENCE [None]
  - NASOPHARYNGITIS [None]
  - RASH PUSTULAR [None]
  - TONGUE DISCOLOURATION [None]
